FAERS Safety Report 25735344 (Version 1)
Quarter: 2025Q3

REPORT INFORMATION
  Report Type: Spontaneous
  Country: GB (occurrence: GB)
  Receive Date: 20250828
  Receipt Date: 20250828
  Transmission Date: 20251021
  Serious: Yes (Hospitalization, Disabling, Other)
  Sender: BAYER HEALTHCARE PHARMACEUTICALS INC.
  Company Number: None

PATIENT
  Age: 35 Year
  Sex: Male

DRUGS (1)
  1. CIPROFLOXACIN [Suspect]
     Active Substance: CIPROFLOXACIN
     Indication: Solar lentigo

REACTIONS (8)
  - Heart rate irregular [Not Recovered/Not Resolved]
  - Chest pain [None]
  - Arthralgia [None]
  - Pain in extremity [None]
  - Sleep disorder [None]
  - Pain in extremity [None]
  - Tinnitus [None]
  - Dizziness [None]

NARRATIVE: CASE EVENT DATE: 20230101
